FAERS Safety Report 12942761 (Version 1)
Quarter: 2016Q4

REPORT INFORMATION
  Report Type: Report from Study
  Country: CA (occurrence: CA)
  Receive Date: 20161114
  Receipt Date: 20161114
  Transmission Date: 20170207
  Serious: Yes (Hospitalization)
  Sender: FDA-Public Use
  Company Number: CA-BIOGEN-2016BI00317160

PATIENT
  Age: 48 Year
  Sex: Female

DRUGS (4)
  1. TECFIDERA [Suspect]
     Active Substance: DIMETHYL FUMARATE
     Indication: MULTIPLE SCLEROSIS
     Dosage: TITRATING DOSE
     Route: 048
     Dates: start: 20160924, end: 20161001
  2. TECFIDERA [Suspect]
     Active Substance: DIMETHYL FUMARATE
     Dosage: TITRATING DOSE
     Route: 048
     Dates: start: 20161002, end: 20161008
  3. TECFIDERA [Suspect]
     Active Substance: DIMETHYL FUMARATE
     Dosage: TITRATING DOSE (240 MG IN AM, 120 MG IN PM)
     Route: 048
     Dates: start: 20161009, end: 20161015
  4. TECFIDERA [Suspect]
     Active Substance: DIMETHYL FUMARATE
     Dosage: TITRATING DOSE (240 MG IN AM, 120 MG IN PM)
     Route: 048
     Dates: start: 20161009, end: 20161015

REACTIONS (3)
  - General physical health deterioration [Not Recovered/Not Resolved]
  - Underdose [Recovered/Resolved]
  - Drug ineffective [Unknown]

NARRATIVE: CASE EVENT DATE: 20160924
